FAERS Safety Report 5248345-X (Version None)
Quarter: 2007Q1

REPORT INFORMATION
  Report Type: 
  Country: None (occurrence: None)
  Receive Date: 20070227
  Receipt Date: 20070220
  Transmission Date: 20070707
  Serious: Yes (Death)
  Sender: FDA-Public Use
  Company Number: US-BOEHRINGER INGELHEIM GMBH, GERMANY-2007-DE-00851GD

PATIENT
  Age: 4 Year
  Sex: Female

DRUGS (3)
  1. CLONIDINE [Suspect]
  2. DEPAKOTE [Suspect]
  3. SEROQUEL [Suspect]

REACTIONS (1)
  - OVERDOSE [None]
